FAERS Safety Report 20542343 (Version 1)
Quarter: 2022Q1

REPORT INFORMATION
  Report Type: Spontaneous
  Country: US (occurrence: US)
  Receive Date: 20220302
  Receipt Date: 20220302
  Transmission Date: 20220423
  Serious: No
  Sender: FDA-Public Use
  Company Number: US-PFIZER INC-202101192568

PATIENT
  Age: 36 Year
  Sex: Female

DRUGS (3)
  1. XELJANZ XR [Suspect]
     Active Substance: TOFACITINIB CITRATE
     Dosage: 11 MG
     Dates: start: 20210823
  2. XELJANZ XR [Suspect]
     Active Substance: TOFACITINIB CITRATE
     Dosage: 11 MG
     Dates: start: 20210908
  3. XELJANZ XR [Suspect]
     Active Substance: TOFACITINIB CITRATE
     Dosage: UNK
     Dates: start: 20220124

REACTIONS (5)
  - Product dose omission issue [Unknown]
  - Drug ineffective [Unknown]
  - Wound [Not Recovered/Not Resolved]
  - Pain [Unknown]
  - Impaired healing [Unknown]

NARRATIVE: CASE EVENT DATE: 20210101
